FAERS Safety Report 5105439-7 (Version None)
Quarter: 2006Q3

REPORT INFORMATION
  Report Type: 
  Country: None (occurrence: None)
  Receive Date: 20060915
  Receipt Date: 20020705
  Transmission Date: 20061208
  Serious: Yes (Life-Threatening, Hospitalization, Disabling, Congenital Anomaly, Other)
  Sender: FDA-Public Use
  Company Number: 2002SE04190

PATIENT
  Age: 0 Year
  Sex: Male
  Weight: 1.7 kg

DRUGS (1)
  1. ATACAND [Suspect]
     Route: 064
     Dates: end: 20020603

REACTIONS (15)
  - CIRCULATORY FAILURE NEONATAL [None]
  - CONGENITAL JOINT MALFORMATION [None]
  - DRUG EXPOSURE DURING PREGNANCY [None]
  - EXTREMITY CONTRACTURE [None]
  - HYPERTENSION NEONATAL [None]
  - MENTAL RETARDATION SEVERITY UNSPECIFIED [None]
  - MICROCEPHALY [None]
  - NEONATAL DISORDER [None]
  - NEONATAL HYPOTENSION [None]
  - NEONATAL RESPIRATORY DISTRESS SYNDROME [None]
  - OLIGURIA [None]
  - PREMATURE BABY [None]
  - RENAL APLASIA [None]
  - SKULL MALFORMATION [None]
  - URINE PROTEIN/CREATININE RATIO INCREASED [None]
